FAERS Safety Report 14761097 (Version 1)
Quarter: 2018Q2

REPORT INFORMATION
  Report Type: Spontaneous
  Country: US (occurrence: US)
  Receive Date: 20180415
  Receipt Date: 20180415
  Transmission Date: 20180711
  Serious: No
  Sender: FDA-Public Use
  Company Number: US-009507513-1804USA005963

PATIENT
  Sex: Female

DRUGS (1)
  1. COZAAR [Suspect]
     Active Substance: LOSARTAN POTASSIUM
     Dosage: 25MG, 1 PILL IN THE MORNING AND 1 AT BEDTIME
     Route: 048

REACTIONS (2)
  - Dizziness [Unknown]
  - Product use in unapproved indication [Unknown]
